FAERS Safety Report 25338096 (Version 1)
Quarter: 2025Q2

REPORT INFORMATION
  Report Type: Spontaneous
  Country: FR (occurrence: FR)
  Receive Date: 20250520
  Receipt Date: 20250520
  Transmission Date: 20250716
  Serious: Yes (Hospitalization)
  Sender: RIGEL PHARMACEUTICALS
  Company Number: FR-Rigel-Pharmaceutical-INC-20250500117

PATIENT
  Age: 75 Year
  Sex: Female

DRUGS (3)
  1. FOSTAMATINIB DISODIUM [Suspect]
     Active Substance: FOSTAMATINIB DISODIUM
     Indication: Immune thrombocytopenia
     Dosage: 200 MILLIGRAM, QD
     Route: 048
     Dates: start: 20250117, end: 20250319
  2. NPLATE [Suspect]
     Active Substance: ROMIPLOSTIM
     Indication: Immune thrombocytopenia
     Dosage: 1000 MICROGRAM, Q.WK.
     Route: 058
     Dates: start: 202407, end: 202411
  3. NPLATE [Suspect]
     Active Substance: ROMIPLOSTIM
     Dosage: 400 MICROGRAM, Q.WK.
     Route: 058
     Dates: start: 202411, end: 20250319

REACTIONS (1)
  - Dyskinesia [Recovering/Resolving]

NARRATIVE: CASE EVENT DATE: 20250227
